FAERS Safety Report 26162331 (Version 1)
Quarter: 2025Q4

REPORT INFORMATION
  Report Type: Spontaneous
  Country: EU (occurrence: EU)
  Receive Date: 20251216
  Receipt Date: 20251216
  Transmission Date: 20260118
  Serious: Yes (Hospitalization, Other)
  Sender: MELINTA THERAPEUTICS
  Company Number: None

PATIENT

DRUGS (10)
  1. METOPROLOL SUCCINATE [Suspect]
     Active Substance: METOPROLOL SUCCINATE
     Indication: Product used for unknown indication
     Dosage: 50 MILLIGRAM, QD IN THE MORNING
     Route: 065
     Dates: start: 202303
  2. DAPAGLIFLOZIN [Suspect]
     Active Substance: DAPAGLIFLOZIN
     Indication: Product used for unknown indication
     Dosage: HALF A TABLET IN THE MORNING
     Route: 065
     Dates: start: 20230323
  3. EZETIMIBE\ROSUVASTATIN [Suspect]
     Active Substance: EZETIMIBE\ROSUVASTATIN
     Indication: Product used for unknown indication
     Dosage: 20MG/10MG ONCE DAILY
     Route: 065
     Dates: start: 202303
  4. TORSEMIDE [Suspect]
     Active Substance: TORSEMIDE
     Indication: Product used for unknown indication
     Dosage: 10 MG ONCE IN THE MORNING
     Route: 065
     Dates: start: 202303
  5. ASPIRIN [Suspect]
     Active Substance: ASPIRIN
     Indication: Product used for unknown indication
     Dosage: 100 MILLIGRAM, QD IN THE EVENING
     Route: 065
     Dates: start: 20230323
  6. CLOPIDOGREL [Suspect]
     Active Substance: CLOPIDOGREL BISULFATE
     Indication: Product used for unknown indication
     Dosage: 75 MILLIGRAM, QD ONCE IN THE EVENING
     Route: 065
     Dates: start: 20230323
  7. CLOPIDOGREL [Suspect]
     Active Substance: CLOPIDOGREL BISULFATE
     Dosage: 100 MG ONCE IN THE EVENING
     Route: 065
     Dates: start: 202303
  8. PIRACETAM [Suspect]
     Active Substance: PIRACETAM
     Indication: Product used for unknown indication
     Dosage: 1200 MILLIGRAM, BID
     Route: 065
     Dates: start: 20230323
  9. CITICOLINE [Suspect]
     Active Substance: CITICOLINE
     Indication: Product used for unknown indication
     Dosage: 250 MILLIGRAM, BID
     Route: 065
     Dates: start: 202306
  10. MEMANTINE [Suspect]
     Active Substance: MEMANTINE
     Indication: Product used for unknown indication
     Dosage: 10 MILLIGRAM, QD IN THE MORNING
     Route: 065
     Dates: start: 202411

REACTIONS (3)
  - Basal cell carcinoma [Unknown]
  - Multiple drug therapy [Unknown]
  - Photosensitivity reaction [Unknown]
